FAERS Safety Report 22182673 (Version 1)
Quarter: 2023Q2

REPORT INFORMATION
  Report Type: Spontaneous
  Country: US (occurrence: US)
  Receive Date: 20230406
  Receipt Date: 20230406
  Transmission Date: 20230722
  Serious: Yes (Hospitalization, Other)
  Sender: FDA-Public Use
  Company Number: US-BRISTOL-MYERS SQUIBB COMPANY-2023-045542

PATIENT
  Age: 83 Year
  Sex: Male
  Weight: 101.15 kg

DRUGS (1)
  1. ONUREG [Suspect]
     Active Substance: AZACITIDINE
     Indication: Acute myeloid leukaemia
     Dosage: DAILY?DAYS 1-7 OF A 28 DAY CYCLE
     Route: 048

REACTIONS (1)
  - Pneumonia [Unknown]
